FAERS Safety Report 12729057 (Version 1)
Quarter: 2016Q3

REPORT INFORMATION
  Report Type: Spontaneous
  Country: US (occurrence: US)
  Receive Date: 20160908
  Receipt Date: 20160908
  Transmission Date: 20161109
  Serious: Yes (Hospitalization, Disabling)
  Sender: FDA-Public Use
  Company Number: None

PATIENT
  Age: 65 Year
  Sex: Female
  Weight: 59.1 kg

DRUGS (13)
  1. NAVELBINE [Concomitant]
     Active Substance: VINORELBINE TARTRATE
  2. LEXAPRO [Concomitant]
     Active Substance: ESCITALOPRAM OXALATE
  3. ZOLPIDEM [Concomitant]
     Active Substance: ZOLPIDEM\ZOLPIDEM TARTRATE
  4. PEMBROLIZUMAB MERCK [Suspect]
     Active Substance: PEMBROLIZUMAB
     Indication: BREAST CANCER STAGE IV
     Dosage: OTHER  INTRAVENOUS (NOT OTHERWISE SPECIFIED)
     Route: 042
     Dates: start: 20160609, end: 20160707
  5. TRAMETINIB [Concomitant]
     Active Substance: TRAMETINIB
  6. CPAP DEVICE [Concomitant]
  7. ATIVAN [Concomitant]
     Active Substance: LORAZEPAM
  8. PREMARIN CREAM [Concomitant]
  9. ALLEGRA [Concomitant]
     Active Substance: FEXOFENADINE HYDROCHLORIDE
  10. MIRALAX [Concomitant]
     Active Substance: POLYETHYLENE GLYCOL 3350
  11. PROCHORPERAZINE (PROCHLORPERAZINE) [Concomitant]
     Active Substance: PROCHLORPERAZINE
  12. FERROUS SULFATE. [Concomitant]
     Active Substance: FERROUS SULFATE
  13. CRANBERRY EXTRACT [Concomitant]
     Active Substance: CRANBERRY JUICE

REACTIONS (5)
  - Pyrexia [None]
  - Diarrhoea [None]
  - Sepsis [None]
  - Hypotension [None]
  - Clostridium difficile colitis [None]

NARRATIVE: CASE EVENT DATE: 20160723
